FAERS Safety Report 13978358 (Version 1)
Quarter: 2017Q3

REPORT INFORMATION
  Report Type: Spontaneous
  Country: US (occurrence: US)
  Receive Date: 20170915
  Receipt Date: 20170915
  Transmission Date: 20171128
  Serious: No
  Sender: FDA-Public Use
  Company Number: US-LPDUSPRD-20161054

PATIENT
  Age: 14 Year
  Sex: Female
  Weight: 64.8 kg

DRUGS (4)
  1. INJECTAFER [Suspect]
     Active Substance: FERRIC CARBOXYMALTOSE
     Dosage: 750 MG IN 250 ML OF NORMAL SAL
     Route: 042
     Dates: start: 20160526, end: 20160526
  2. REMICADE [Concomitant]
     Active Substance: INFLIXIMAB
  3. MULTIVITAMIN [Concomitant]
     Active Substance: VITAMINS
  4. METHOTREXATE. [Concomitant]
     Active Substance: METHOTREXATE

REACTIONS (3)
  - Dyspnoea [Recovered/Resolved]
  - Off label use [Unknown]
  - Cough [Recovered/Resolved]

NARRATIVE: CASE EVENT DATE: 20160526
